FAERS Safety Report 11920509 (Version 1)
Quarter: 2016Q1

REPORT INFORMATION
  Report Type: Report from Study
  Country: RO (occurrence: RO)
  Receive Date: 20160115
  Receipt Date: 20160115
  Transmission Date: 20160526
  Serious: Yes (Death)
  Sender: FDA-Public Use
  Company Number: RO-ABBVIE-16P-135-1535105-00

PATIENT
  Age: 73 Year
  Sex: Female

DRUGS (4)
  1. PREDUCTAL [Concomitant]
     Active Substance: TRIMETAZIDINE DIHYDROCHLORIDE
     Indication: MYOCARDIAL ISCHAEMIA
  2. DUODOPA [Suspect]
     Active Substance: CARBIDOPA\LEVODOPA
     Indication: PARKINSON^S DISEASE
     Dosage: 20 MG/ML + 5 MG/ML: MD -7 ML/H, CR - 4.6 ML/H, ED - 3 ML/H
     Route: 050
     Dates: start: 20130628, end: 20160110
  3. ASPENTER [Concomitant]
     Active Substance: ASPIRIN
     Indication: MYOCARDIAL ISCHAEMIA
     Dosage: 0-1-0 TB/DAY
     Route: 048
     Dates: start: 2005, end: 20160110
  4. PREDUCTAL [Concomitant]
     Active Substance: TRIMETAZIDINE DIHYDROCHLORIDE
     Indication: HYPERTENSION
     Dosage: 1-0-1 TB/DAY
     Route: 048
     Dates: start: 2005, end: 20160110

REACTIONS (2)
  - Acute respiratory failure [Fatal]
  - Cardio-respiratory arrest [Fatal]

NARRATIVE: CASE EVENT DATE: 20160109
